FAERS Safety Report 23897116 (Version 1)
Quarter: 2024Q2

REPORT INFORMATION
  Report Type: Spontaneous
  Country: US (occurrence: US)
  Receive Date: 20240524
  Receipt Date: 20240524
  Transmission Date: 20240716
  Serious: No
  Sender: FDA-Public Use
  Company Number: US-BAYER-2024A075836

PATIENT
  Age: 68 Year
  Sex: Male

DRUGS (1)
  1. MIRALAX [Suspect]
     Active Substance: POLYETHYLENE GLYCOL 3350
     Indication: Faeces soft
     Dosage: 17G MIRALAX WITH 6 TO 8 OZ OF WATER OR 6 TO 8 OZ BLACK COFFEE
     Route: 048
     Dates: start: 2022, end: 20240523

REACTIONS (1)
  - Incorrect product administration duration [Unknown]

NARRATIVE: CASE EVENT DATE: 20220101
